FAERS Safety Report 7044128-9 (Version None)
Quarter: 2010Q4

REPORT INFORMATION
  Report Type: 
  Country: None (occurrence: None)
  Receive Date: 20101013
  Receipt Date: 20101004
  Transmission Date: 20110411
  Serious: Yes (Hospitalization, Other)
  Sender: FDA-Public Use
  Company Number: US-PFIZER INC-2010126001

PATIENT
  Age: 45 Year
  Sex: Female

DRUGS (26)
  1. GEODON [Suspect]
     Dosage: 160MG
  2. GEODON [Suspect]
     Dosage: 80MG
  3. GEODON [Suspect]
     Dosage: 10MG
     Route: 030
  4. ALPRAZOLAM [Suspect]
  5. NITROGLYCERIN [Suspect]
  6. LORAZEPAM [Suspect]
  7. LOPERAMIDE HYDROCHLORIDE [Suspect]
  8. ISOSORBIDE MONONITRATE [Suspect]
  9. CALCIUM CARBONATE [Suspect]
  10. ACETYLSALICYLIC ACID [Suspect]
  11. DILTIAZEM HYDROCHLORIDE [Suspect]
  12. NICOTINE [Suspect]
  13. DEPAKOTE [Suspect]
  14. SPIRIVA [Suspect]
  15. TOPAMAX [Suspect]
  16. ABILIFY [Suspect]
  17. ACETAMINOPHEN [Suspect]
  18. DIPHENHYDRAMINE HYDROCHLORIDE [Suspect]
  19. ZOLPIDEM [Suspect]
  20. SYNTHROID [Suspect]
  21. BACTRIM [Suspect]
  22. MAGNESIUM HYDROXIDE [Suspect]
  23. LAMICTAL [Suspect]
     Dosage: 200 MG, 2X/DAY
  24. OMEPRAZOLE [Suspect]
  25. HALDOL [Suspect]
     Dosage: 5 MG, AS NEEDED
  26. FISH OIL [Suspect]

REACTIONS (2)
  - COMA [None]
  - MENTAL DISORDER [None]
